FAERS Safety Report 20955173 (Version 1)
Quarter: 2022Q2

REPORT INFORMATION
  Report Type: Spontaneous
  Country: US (occurrence: US)
  Receive Date: 20220614
  Receipt Date: 20220614
  Transmission Date: 20220720
  Serious: No
  Sender: FDA-Public Use
  Company Number: US-PFM-2021-10176

PATIENT
  Sex: Female
  Weight: 7 kg

DRUGS (2)
  1. HEMANGEOL [Suspect]
     Active Substance: PROPRANOLOL HYDROCHLORIDE
     Indication: Haemangioma
     Dosage: 2.4 ML, BID (2/DAY)
     Route: 048
  2. HEMANGEOL [Suspect]
     Active Substance: PROPRANOLOL HYDROCHLORIDE
     Dosage: GIVE 3ML BY MOUTH 2 TIMES DAILY. GIVE 9 HOURS APART.
     Route: 048

REACTIONS (4)
  - Viral infection [Unknown]
  - Illness [Unknown]
  - Skin discolouration [Unknown]
  - Diarrhoea [Unknown]
